FAERS Safety Report 4696771-X (Version None)
Quarter: 2005Q2

REPORT INFORMATION
  Report Type: 
  Country: None (occurrence: None)
  Receive Date: 20050620
  Receipt Date: 20050614
  Transmission Date: 20051028
  Serious: Yes (Other)
  Sender: FDA-Public Use
  Company Number: 2005-06-0767

PATIENT
  Age: 47 Year
  Sex: Female

DRUGS (5)
  1. AERIUS (DESLORATADINE) TABLETS [Suspect]
     Dosage: 2 DOSES ORAL
     Route: 048
  2. HYDROCHLOROTHIAZIDE [Concomitant]
  3. ZOPICLONE [Concomitant]
  4. LAMOTRIGINE [Concomitant]
  5. TRAZODONE [Concomitant]

REACTIONS (1)
  - HALLUCINATION [None]
